FAERS Safety Report 6098798-2 (Version None)
Quarter: 2009Q1

REPORT INFORMATION
  Report Type: 
  Country: None (occurrence: None)
  Receive Date: 20090302
  Receipt Date: 20090218
  Transmission Date: 20090719
  Serious: Yes (Hospitalization, Other)
  Sender: FDA-Public Use
  Company Number: GB-PFIZER INC-2009171829

PATIENT

DRUGS (7)
  1. GABAPENTIN [Suspect]
     Indication: ARTHRALGIA
     Dosage: 300 MG, 3X/DAY
  2. DICLOFENAC [Concomitant]
     Dosage: 75 MG, 2X/DAY
  3. TRAMADOL [Concomitant]
     Dosage: 50 MG, 4X/DAY
  4. DIHYDROCODEINE [Concomitant]
     Dosage: 30 MG, 4X/DAY
  5. FUROSEMIDE [Concomitant]
     Dosage: 80 MG, 1X/DAY
  6. AMLODIPINE [Concomitant]
     Dosage: 5 MG, 1X/DAY
  7. IRBESARTAN [Concomitant]
     Dosage: 300 MG, 1X/DAY

REACTIONS (29)
  - ANAEMIA [None]
  - BILIARY DILATATION [None]
  - BILIARY TRACT INFECTION [None]
  - BLOOD ALKALINE PHOSPHATASE INCREASED [None]
  - BODY TEMPERATURE INCREASED [None]
  - COGNITIVE DISORDER [None]
  - CONTINUOUS HAEMODIAFILTRATION [None]
  - CONTUSION [None]
  - DEPRESSED LEVEL OF CONSCIOUSNESS [None]
  - DRUG TOXICITY [None]
  - ENCEPHALOPATHY [None]
  - FALL [None]
  - GAMMA-GLUTAMYLTRANSFERASE INCREASED [None]
  - GENERAL PHYSICAL HEALTH DETERIORATION [None]
  - HYPOTENSION [None]
  - HYPOVENTILATION [None]
  - IATROGENIC INJURY [None]
  - IMPAIRED SELF-CARE [None]
  - LOSS OF CONSCIOUSNESS [None]
  - MUSCULOSKELETAL PAIN [None]
  - MYOCLONUS [None]
  - OFF LABEL USE [None]
  - OSTEOARTHRITIS [None]
  - RENAL CYST [None]
  - RENAL FAILURE [None]
  - RENAL FAILURE ACUTE [None]
  - SEPTIC SHOCK [None]
  - SOMNOLENCE [None]
  - URAEMIC ENCEPHALOPATHY [None]
